FAERS Safety Report 5504836-5 (Version None)
Quarter: 2007Q4

REPORT INFORMATION
  Report Type: 
  Country: None (occurrence: None)
  Receive Date: 20071102
  Receipt Date: 20071026
  Transmission Date: 20080405
  Serious: Yes (Hospitalization, Other)
  Sender: FDA-Public Use
  Company Number: PHBS2007JP17070

PATIENT
  Age: 14 Year
  Sex: Female

DRUGS (4)
  1. NEORAL [Suspect]
     Indication: APLASTIC ANAEMIA
     Dosage: 120 MG/D
     Route: 048
     Dates: end: 20071012
  2. NORGESTREL AND ETHINYL ESTRADIOL [Suspect]
     Dosage: UNK, UNK
     Route: 048
     Dates: start: 20071002, end: 20071008
  3. METOCLOPRAMIDE HCL [Concomitant]
     Dosage: UNK, UNK
     Route: 048
     Dates: start: 20071002, end: 20071008
  4. SANDIMMUNE [Concomitant]
     Indication: APLASTIC ANAEMIA
     Dosage: 60 MG/D
     Dates: start: 20071013

REACTIONS (4)
  - DRUG INTERACTION [None]
  - IMMUNOSUPPRESSANT DRUG LEVEL DECREASED [None]
  - MENORRHAGIA [None]
  - PLATELET COUNT DECREASED [None]
